FAERS Safety Report 25120972 (Version 1)
Quarter: 2025Q1

REPORT INFORMATION
  Report Type: Spontaneous
  Country: US (occurrence: US)
  Receive Date: 20250326
  Receipt Date: 20250326
  Transmission Date: 20250409
  Serious: Yes (Other)
  Sender: ABBVIE
  Company Number: US-ABBVIE-6193210

PATIENT
  Sex: Female

DRUGS (1)
  1. SYNTHROID [Suspect]
     Active Substance: LEVOTHYROXINE SODIUM
     Indication: Product used for unknown indication
     Dosage: 100 MICROGRAM? FORM STRENGTH: 50 MICROGRAM
     Route: 048
     Dates: start: 1992

REACTIONS (16)
  - Blood thyroid stimulating hormone abnormal [Unknown]
  - Chest pain [Unknown]
  - Insomnia [Unknown]
  - Blood thyroid stimulating hormone increased [Unknown]
  - Product blister packaging issue [Not Recovered/Not Resolved]
  - Joint stiffness [Unknown]
  - Thyroid hormones decreased [Unknown]
  - Feeling abnormal [Unknown]
  - Gait inability [Unknown]
  - Illness [Unknown]
  - Condition aggravated [Unknown]
  - Electrolyte imbalance [Unknown]
  - Blood electrolytes increased [Unknown]
  - Joint swelling [Unknown]
  - Chromatopsia [Unknown]
  - Muscle disorder [Unknown]
